FAERS Safety Report 5778034-4 (Version None)
Quarter: 2008Q2

REPORT INFORMATION
  Report Type: 
  Country: None (occurrence: None)
  Receive Date: 20080619
  Receipt Date: 20080612
  Transmission Date: 20081010
  Serious: Yes (Disabling)
  Sender: FDA-Public Use
  Company Number: JP-BRISTOL-MYERS SQUIBB COMPANY-13715263

PATIENT
  Age: 65 Year
  Sex: Male

DRUGS (2)
  1. ABILIFY [Suspect]
     Indication: SCHIZOPHRENIA
     Route: 048
     Dates: start: 20061225, end: 20070203
  2. NOVOLIN R [Concomitant]
     Indication: DIABETES MELLITUS
     Dosage: REDUCED TO 4 IU 11-JAN-2007 THEN D/C ON 4-FEB-2007
     Route: 058
     Dates: start: 20061206, end: 20070110

REACTIONS (1)
  - INAPPROPRIATE ANTIDIURETIC HORMONE SECRETION [None]
